FAERS Safety Report 8314689-8 (Version None)
Quarter: 2012Q2

REPORT INFORMATION
  Report Type: 
  Country: None (occurrence: None)
  Receive Date: 20120426
  Receipt Date: 20120419
  Transmission Date: 20120825
  Serious: Yes (Hospitalization)
  Sender: FDA-Public Use
  Company Number: KR-ELI_LILLY_AND_COMPANY-KR201201008853

PATIENT
  Age: 23 Year
  Sex: Male

DRUGS (3)
  1. CYMBALTA [Suspect]
     Indication: MAJOR DEPRESSION
     Dosage: 120 MG, UNKNOWN
     Route: 048
     Dates: start: 20110901
  2. ABILIFY [Concomitant]
     Dosage: 10 MG, UNKNOWN
  3. ATIVAN [Concomitant]
     Dosage: 1 MG, UNKNOWN

REACTIONS (4)
  - WEIGHT INCREASED [None]
  - STRESS [None]
  - INSOMNIA [None]
  - DEPRESSION [None]
